FAERS Safety Report 19099250 (Version 1)
Quarter: 2021Q2

REPORT INFORMATION
  Report Type: Spontaneous
  Country: US (occurrence: US)
  Receive Date: 20210406
  Receipt Date: 20210406
  Transmission Date: 20210717
  Serious: Yes (Death)
  Sender: FDA-Public Use
  Company Number: US-SYNEX-T202101522

PATIENT
  Age: 41 Year

DRUGS (2)
  1. INOMAX [Suspect]
     Active Substance: NITRIC OXIDE
     Indication: HYPOXIA
     Dosage: 40 PPM (INHALATION)
     Route: 055
     Dates: start: 20210313, end: 20210329
  2. INOMAX [Suspect]
     Active Substance: NITRIC OXIDE
     Indication: COVID-19

REACTIONS (3)
  - COVID-19 [Fatal]
  - Product use in unapproved indication [Unknown]
  - Product use issue [Unknown]

NARRATIVE: CASE EVENT DATE: 20210313
